FAERS Safety Report 5162398-9 (Version None)
Quarter: 2006Q4

REPORT INFORMATION
  Report Type: 
  Country: None (occurrence: None)
  Receive Date: 20061128
  Receipt Date: 20061128
  Transmission Date: 20070319
  Serious: Yes (Other)
  Sender: FDA-Public Use
  Company Number: None

PATIENT
  Age: 83 Year
  Sex: Male
  Weight: 75.9775 kg

DRUGS (6)
  1. METHOTREXATE [Suspect]
     Indication: RHEUMATOID ARTHRITIS
     Dosage: 5 MG PO WEEKLY
     Route: 048
  2. CALCIUM CO3 / VIT D [Concomitant]
  3. OMEPRAZOLE [Concomitant]
  4. TRAZODONE HCL [Concomitant]
  5. FOLIC ACID [Concomitant]
  6. TYLENOL ARTHRITIS STRENGTH [Concomitant]

REACTIONS (1)
  - PANCYTOPENIA [None]
